FAERS Safety Report 6274700-5 (Version None)
Quarter: 2009Q3

REPORT INFORMATION
  Report Type: 
  Country: None (occurrence: None)
  Receive Date: 20090721
  Receipt Date: 20070515
  Transmission Date: 20100115
  Serious: Yes (Other)
  Sender: FDA-Public Use
  Company Number: US-ASTRAZENECA-2006UW21959

PATIENT
  Age: 571 Month
  Sex: Female
  Weight: 111.1 kg

DRUGS (6)
  1. SEROQUEL [Suspect]
     Dosage: 100,200, 400 MG
     Route: 048
     Dates: start: 20001012, end: 20060101
  2. SEROQUEL [Suspect]
     Dosage: 100-400 MG
     Route: 048
     Dates: start: 20010607
  3. KLONOPIN [Concomitant]
     Dates: start: 19980406
  4. LISINOPRIL [Concomitant]
     Dates: start: 20040714, end: 20060621
  5. CELEXA [Concomitant]
     Dates: start: 20040714
  6. REMERON [Concomitant]
     Dates: start: 20030320

REACTIONS (3)
  - DIABETES MELLITUS [None]
  - DIABETIC NEUROPATHY [None]
  - TYPE 2 DIABETES MELLITUS [None]
